FAERS Safety Report 4854823-5 (Version None)
Quarter: 2005Q4

REPORT INFORMATION
  Report Type: 
  Country: None (occurrence: None)
  Receive Date: 20051215
  Receipt Date: 20051122
  Transmission Date: 20060501
  Serious: Yes (Hospitalization, Other)
  Sender: FDA-Public Use
  Company Number: PHHO2005IT18545

PATIENT
  Age: 74 Year
  Sex: Female
  Weight: 53 kg

DRUGS (3)
  1. GLEEVEC [Suspect]
     Indication: GASTROINTESTINAL STROMAL TUMOUR
     Dosage: 400 MG, QD
     Route: 048
     Dates: start: 20040305
  2. GLEEVEC [Suspect]
     Dosage: 400 MG, QD
     Route: 048
     Dates: end: 20041018
  3. GLEEVEC [Suspect]
     Dosage: 200 MG, QD
     Route: 048
     Dates: start: 20050115

REACTIONS (11)
  - ANAEMIA [None]
  - DIARRHOEA [None]
  - EOSINOPHIL COUNT INCREASED [None]
  - GASTRECTOMY [None]
  - LYMPHADENECTOMY [None]
  - MALIGNANT NEOPLASM PROGRESSION [None]
  - NEUTROPHIL COUNT DECREASED [None]
  - OMENTECTOMY [None]
  - PERIORBITAL OEDEMA [None]
  - RASH [None]
  - SPLENECTOMY [None]
